FAERS Safety Report 21871559 (Version 1)
Quarter: 2023Q1

REPORT INFORMATION
  Report Type: Spontaneous
  Country: US (occurrence: None)
  Receive Date: 20230113
  Receipt Date: 20230113
  Transmission Date: 20230417
  Serious: No
  Sender: FDA-Public Use
  Company Number: None

PATIENT
  Age: 33 Year
  Sex: Female
  Weight: 76.5 kg

DRUGS (1)
  1. DEXTROAMPHETAMINE [Suspect]
     Active Substance: DEXTROAMPHETAMINE
     Indication: Attention deficit hyperactivity disorder
     Dosage: OTHER QUANTITY : 1 TABLET(S);?FREQUENCY : TWICE A DAY;?
     Route: 048
     Dates: start: 20230111, end: 20230113

REACTIONS (9)
  - Drug ineffective [None]
  - Product substitution issue [None]
  - Therapeutic response changed [None]
  - Paradoxical drug reaction [None]
  - Fatigue [None]
  - Headache [None]
  - Irritability [None]
  - Feeling abnormal [None]
  - Withdrawal syndrome [None]

NARRATIVE: CASE EVENT DATE: 20230113
